FAERS Safety Report 21045452 (Version 1)
Quarter: 2022Q3

REPORT INFORMATION
  Report Type: Spontaneous
  Country: AU (occurrence: AU)
  Receive Date: 20220706
  Receipt Date: 20220706
  Transmission Date: 20221027
  Serious: Yes (Death, Other)
  Sender: FDA-Public Use
  Company Number: AU-TAKEDA-2022TUS044111

PATIENT
  Age: 32 Year
  Weight: 66.6 kg

DRUGS (2)
  1. CEPROTIN [Suspect]
     Active Substance: PROTEIN C
     Indication: Purpura fulminans
     Dosage: 7000 INTERNATIONAL UNIT
     Route: 065
  2. CEPROTIN [Suspect]
     Active Substance: PROTEIN C
     Dosage: 3000 INTERNATIONAL UNIT, Q6HR
     Route: 042

REACTIONS (5)
  - Multiple organ dysfunction syndrome [Fatal]
  - Influenza [Fatal]
  - Pancytopenia [Fatal]
  - Infection [Fatal]
  - COVID-19 [Fatal]

NARRATIVE: CASE EVENT DATE: 20220621
